FAERS Safety Report 15279802 (Version 1)
Quarter: 2018Q3

REPORT INFORMATION
  Report Type: Spontaneous
  Country: DE (occurrence: DE)
  Receive Date: 20180815
  Receipt Date: 20180815
  Transmission Date: 20181010
  Serious: Yes (Other)
  Sender: FDA-Public Use
  Company Number: DE-TEVA-2018-DE-940490

PATIENT
  Age: 67 Year
  Sex: Female

DRUGS (1)
  1. RAMIPRIL. [Suspect]
     Active Substance: RAMIPRIL
     Indication: HYPERTENSIVE CRISIS
     Route: 048
     Dates: start: 20171214

REACTIONS (3)
  - Cough [Unknown]
  - Angina pectoris [Unknown]
  - Sinusitis [Unknown]

NARRATIVE: CASE EVENT DATE: 201712
